FAERS Safety Report 12317930 (Version 3)
Quarter: 2016Q3

REPORT INFORMATION
  Report Type: Spontaneous
  Country: US (occurrence: US)
  Receive Date: 20160429
  Receipt Date: 20160705
  Transmission Date: 20161109
  Serious: No
  Sender: FDA-Public Use
  Company Number: US-GLAXOSMITHKLINE-US2016052244

PATIENT
  Age: 77 Year
  Sex: Female

DRUGS (2)
  1. BREO ELLIPTA [Suspect]
     Active Substance: FLUTICASONE FUROATE\VILANTEROL TRIFENATATE
     Indication: CHRONIC OBSTRUCTIVE PULMONARY DISEASE
     Dosage: 1 PUFF(S), QD
     Route: 055
     Dates: start: 201511, end: 201604
  2. QVAR [Suspect]
     Active Substance: BECLOMETHASONE DIPROPIONATE
     Indication: PRODUCT USED FOR UNKNOWN INDICATION
     Dosage: UNK
     Dates: start: 201604

REACTIONS (8)
  - Hypoaesthesia oral [Not Recovered/Not Resolved]
  - Swollen tongue [Not Recovered/Not Resolved]
  - Drug effect incomplete [Unknown]
  - Pharyngeal oedema [Not Recovered/Not Resolved]
  - Ill-defined disorder [Unknown]
  - Dysphonia [Not Recovered/Not Resolved]
  - Nasopharyngitis [Recovering/Resolving]
  - Activities of daily living impaired [Unknown]

NARRATIVE: CASE EVENT DATE: 201602
